FAERS Safety Report 4807418-3 (Version None)
Quarter: 2005Q4

REPORT INFORMATION
  Report Type: 
  Country: None (occurrence: None)
  Receive Date: 20051020
  Receipt Date: 20051020
  Transmission Date: 20060501
  Serious: Yes (Other)
  Sender: FDA-Public Use
  Company Number: None

PATIENT
  Sex: Male
  Weight: 77.1115 kg

DRUGS (12)
  1. REVLIMID [Suspect]
     Indication: MULTIPLE MYELOMA
     Dosage: 25 MG PO  21 DAYS
     Route: 048
     Dates: start: 20050331
  2. BIAXIN [Suspect]
     Indication: MULTIPLE MYELOMA
     Dosage: 500 MG 1X/DAY
  3. DEXAMETHASONE TAB [Suspect]
     Indication: MULTIPLE MYELOMA
     Dosage: 20 MG/DAY 1X WEEK
  4. MYCELEX [Concomitant]
  5. LASIX [Concomitant]
  6. DURAGESIC-100 [Concomitant]
  7. PROSCAR [Concomitant]
  8. COLACE [Concomitant]
  9. LACTULOSE [Concomitant]
  10. PREVACID [Concomitant]
  11. ASPIRIN [Concomitant]
  12. BACTRIM [Concomitant]

REACTIONS (2)
  - CONTUSION [None]
  - MOUTH HAEMORRHAGE [None]
